FAERS Safety Report 12322032 (Version 1)
Quarter: 2016Q2

REPORT INFORMATION
  Report Type: Report from Study
  Country: US (occurrence: US)
  Receive Date: 20160502
  Receipt Date: 20160502
  Transmission Date: 20160815
  Serious: Yes (Hospitalization, Other)
  Sender: FDA-Public Use
  Company Number: US-GLAXOSMITHKLINE-A0752549A

PATIENT
  Age: 45 Year
  Sex: Female
  Weight: 75 kg

DRUGS (4)
  1. PACLITAXEL. [Suspect]
     Active Substance: PACLITAXEL
     Dosage: 2 MG/KG, WE
     Route: 042
     Dates: start: 20081007, end: 20081014
  2. TYKERB [Suspect]
     Active Substance: LAPATINIB DITOSYLATE
     Indication: BREAST CANCER METASTATIC
     Dosage: 750 MG, QD
     Route: 048
     Dates: start: 20081007, end: 20081013
  3. PACLITAXEL. [Suspect]
     Active Substance: PACLITAXEL
     Indication: BREAST CANCER METASTATIC
     Dosage: 80 MG/M2, U
     Route: 042
     Dates: start: 20081007, end: 20081014
  4. CARBOPLATIN. [Suspect]
     Active Substance: CARBOPLATIN
     Indication: BREAST CANCER METASTATIC
     Dosage: 262 MG, U
     Route: 042
     Dates: start: 20081007, end: 20081014

REACTIONS (2)
  - Renal failure [Recovered/Resolved]
  - Urinary tract infection [Recovered/Resolved]

NARRATIVE: CASE EVENT DATE: 20081016
